FAERS Safety Report 6770688-9 (Version None)
Quarter: 2010Q2

REPORT INFORMATION
  Report Type: 
  Country: None (occurrence: None)
  Receive Date: 20100615
  Receipt Date: 20100603
  Transmission Date: 20101027
  Serious: Yes (Death, Hospitalization, Other)
  Sender: FDA-Public Use
  Company Number: PHEH2006US05814

PATIENT
  Sex: Male
  Weight: 87.074 kg

DRUGS (31)
  1. ZOMETA [Suspect]
     Indication: METASTASES TO BONE
     Dosage: Q MONTH
     Dates: end: 20060101
  2. CHEMOTHERAPEUTICS,OTHER [Concomitant]
     Dates: start: 20041201, end: 20050901
  3. ZOLADEX [Concomitant]
     Dosage: Q3MOS; THEN Q4MOS
  4. PENICILLIN NOS [Concomitant]
     Dosage: 500 UNK, 4 X DAY
  5. VITAMIN TAB [Concomitant]
  6. CRESTOR [Concomitant]
     Dosage: 5 MG, QOD
  7. OXYCODONE [Concomitant]
     Dosage: 5/325
  8. CALCIUM CARBONATE [Concomitant]
  9. MEGESTROL ACETATE [Concomitant]
     Dosage: 20 MG, DAILY
  10. ACETYLSALICYLIC ACID [Concomitant]
     Dosage: DAILY
  11. CASODEX [Concomitant]
     Dosage: 50 UNK, UNK
  12. PERCOCET [Concomitant]
  13. FLOMAX [Concomitant]
     Dosage: 0.4 MG, UNK
  14. ACETAMINOPHEN AND HYDROCODONE BITARTRATE [Concomitant]
     Dosage: UNK
  15. HORMONES NOS [Concomitant]
  16. NEXIUM [Concomitant]
  17. COUMADIN [Concomitant]
  18. ZOCOR [Concomitant]
  19. DETROL [Concomitant]
  20. LORTAB [Concomitant]
  21. LUPRON [Concomitant]
  22. NILANDRON [Concomitant]
  23. PRILOSEC [Concomitant]
  24. ZOFRAN [Concomitant]
  25. OXYCONTIN [Concomitant]
  26. PREDNISONE [Concomitant]
  27. KETOCONAZOLE [Concomitant]
  28. THALOMID [Concomitant]
     Dosage: 100 MG DAILY
  29. DOCUSATE SODIUM [Concomitant]
     Dosage: 100 MG
  30. MORPHINE [Concomitant]
     Dosage: 30 MG, PRN
  31. QUADRAMINT [Concomitant]

REACTIONS (93)
  - ABDOMINAL DISCOMFORT [None]
  - ABDOMINAL DISTENSION [None]
  - ABDOMINAL MASS [None]
  - ABSCESS JAW [None]
  - ACUTE MYOCARDIAL INFARCTION [None]
  - ANAEMIA [None]
  - ANISOCYTOSIS [None]
  - ATRIAL FIBRILLATION [None]
  - BLADDER CATHETERISATION [None]
  - BLOOD GLUCOSE INCREASED [None]
  - BONE DENSITY DECREASED [None]
  - BONE DISORDER [None]
  - CARDIAC MURMUR [None]
  - CHILLS [None]
  - CONCOMITANT DISEASE PROGRESSION [None]
  - CONSTIPATION [None]
  - DECREASED APPETITE [None]
  - DEHYDRATION [None]
  - DENTAL CARIES [None]
  - DEPRESSION [None]
  - DIZZINESS [None]
  - DUODENAL OBSTRUCTION [None]
  - DYSPEPSIA [None]
  - DYSPHAGIA [None]
  - DYSPNOEA [None]
  - EPISTAXIS [None]
  - FAECES DISCOLOURED [None]
  - GASTROSTOMY [None]
  - GASTROSTOMY TUBE INSERTION [None]
  - GINGIVAL DISORDER [None]
  - GINGIVAL PAIN [None]
  - HAEMATURIA [None]
  - HAEMORRHAGE [None]
  - HAEMORRHOIDS [None]
  - HIATUS HERNIA [None]
  - HYPERHIDROSIS [None]
  - HYPOAESTHESIA [None]
  - HYPOAESTHESIA ORAL [None]
  - HYPOCHROMASIA [None]
  - HYPOPHAGIA [None]
  - HYPOTENSION [None]
  - IMPAIRED HEALING [None]
  - INFECTION [None]
  - INSOMNIA [None]
  - JAW LESION EXCISION [None]
  - JAW OPERATION [None]
  - LEFT VENTRICULAR HYPERTROPHY [None]
  - LOOSE TOOTH [None]
  - LYMPHOPENIA [None]
  - MALIGNANT NEOPLASM PROGRESSION [None]
  - MASS [None]
  - MEMORY IMPAIRMENT [None]
  - METABOLIC ACIDOSIS [None]
  - METASTASES TO BONE [None]
  - METASTASES TO LYMPH NODES [None]
  - MICROCYTOSIS [None]
  - MITRAL VALVE INCOMPETENCE [None]
  - MUSCULAR WEAKNESS [None]
  - NAUSEA [None]
  - NERVOUSNESS [None]
  - OEDEMA [None]
  - OESOPHAGOGASTRODUODENOSCOPY [None]
  - OROPHARYNGEAL PLAQUE [None]
  - OSTEOMYELITIS [None]
  - OSTEONECROSIS OF JAW [None]
  - OSTEOSYNTHESIS [None]
  - PAIN [None]
  - PAIN IN JAW [None]
  - PERIODONTAL DISEASE [None]
  - PERIODONTITIS [None]
  - POLYCHROMASIA [None]
  - POOR PERSONAL HYGIENE [None]
  - PRIMARY SEQUESTRUM [None]
  - PROCTALGIA [None]
  - PROSTATE CANCER METASTATIC [None]
  - PROSTATIC SPECIFIC ANTIGEN INCREASED [None]
  - PULMONARY OEDEMA [None]
  - PURULENT DISCHARGE [None]
  - RADIOTHERAPY [None]
  - RESPIRATORY FAILURE [None]
  - ROULEAUX FORMATION [None]
  - SINUS TACHYCARDIA [None]
  - STAPHYLOCOCCAL INFECTION [None]
  - SYNCOPE [None]
  - THROMBOCYTOPENIA [None]
  - THYROIDITIS [None]
  - TOOTH DISORDER [None]
  - TOOTH EXTRACTION [None]
  - TRANSURETHRAL PROSTATECTOMY [None]
  - URINARY RETENTION [None]
  - VISION BLURRED [None]
  - VOMITING [None]
  - WEIGHT DECREASED [None]
